FAERS Safety Report 16613488 (Version 3)
Quarter: 2019Q3

REPORT INFORMATION
  Report Type: Spontaneous
  Country: US (occurrence: US)
  Receive Date: 20190723
  Receipt Date: 20190906
  Transmission Date: 20191004
  Serious: No
  Sender: FDA-Public Use
  Company Number: US-ASTRAZENECA-2019SF04136

PATIENT
  Age: 30991 Day
  Sex: Male
  Weight: 96.2 kg

DRUGS (13)
  1. LOSARTAN. [Concomitant]
     Active Substance: LOSARTAN
     Indication: BLOOD PRESSURE ABNORMAL
     Dosage: 1 MG PO
  2. FOLIC ACID. [Concomitant]
     Active Substance: FOLIC ACID
     Dosage: 800.0MG UNKNOWN
  3. HUMALOG [Concomitant]
     Active Substance: INSULIN LISPRO
     Dosage: 45 UNITS, THREE TIMES A DAY
     Route: 058
  4. OMEPRAZOLE. [Suspect]
     Active Substance: OMEPRAZOLE
     Indication: ABDOMINAL DISCOMFORT
     Route: 048
  5. LANTUS [Concomitant]
     Active Substance: INSULIN GLARGINE
     Dosage: 70 UNITS, FOUR TIMES A DAY
     Route: 058
  6. VITAMIN B12 [Concomitant]
     Active Substance: CYANOCOBALAMIN
  7. BYDUREON BCISE [Suspect]
     Active Substance: EXENATIDE
     Indication: DIABETES MELLITUS
     Route: 058
     Dates: start: 20190617
  8. TYLENOL [Concomitant]
     Active Substance: ACETAMINOPHEN
     Dosage: 500 MG AT HS HE TAKES WITH SIMVASTATIN
  9. VITAMIN B3 [Concomitant]
     Active Substance: NIACIN
     Dosage: 50.0MG UNKNOWN
  10. FUROSEMIDE. [Concomitant]
     Active Substance: FUROSEMIDE
     Route: 048
  11. DOXAZOSIN [Concomitant]
     Active Substance: DOXAZOSIN MESYLATE
     Dosage: 1 MG PO
  12. VITAMIN D3 [Concomitant]
     Active Substance: CHOLECALCIFEROL
     Dosage: 1000 IU FOR BONES SUPPORT AND TEETH
  13. SIMVASTATIN. [Concomitant]
     Active Substance: SIMVASTATIN
     Dosage: 40 MG PO AT HS

REACTIONS (7)
  - Device issue [Unknown]
  - Hypertension [Unknown]
  - Wrong technique in product usage process [Unknown]
  - Peripheral swelling [Unknown]
  - Underdose [Unknown]
  - Diabetes mellitus inadequate control [Unknown]
  - Blood glucose fluctuation [Unknown]

NARRATIVE: CASE EVENT DATE: 20190717
